FAERS Safety Report 22114838 (Version 2)
Quarter: 2023Q2

REPORT INFORMATION
  Report Type: Spontaneous
  Country: US (occurrence: US)
  Receive Date: 20230320
  Receipt Date: 20230404
  Transmission Date: 20230722
  Serious: No
  Sender: FDA-Public Use
  Company Number: US-SA-SAC20230317000688

PATIENT
  Age: 32 Year
  Sex: Female

DRUGS (1)
  1. DUPIXENT [Suspect]
     Active Substance: DUPILUMAB
     Dosage: 300MG OTHER
     Route: 058

REACTIONS (4)
  - Asthma [Unknown]
  - Product dose omission issue [Unknown]
  - Nasal congestion [Unknown]
  - Headache [Unknown]

NARRATIVE: CASE EVENT DATE: 20230301
